FAERS Safety Report 24258630 (Version 6)
Quarter: 2025Q2

REPORT INFORMATION
  Report Type: Spontaneous
  Country: US (occurrence: US)
  Receive Date: 20240828
  Receipt Date: 20250625
  Transmission Date: 20250717
  Serious: Yes (Other)
  Sender: PFIZER
  Company Number: US-PFIZER INC-2020231708

PATIENT
  Age: 70 Year
  Sex: Female
  Weight: 70.31 kg

DRUGS (12)
  1. IBRANCE [Suspect]
     Active Substance: PALBOCICLIB
     Indication: Breast cancer female
     Dosage: 125 MG, 1X/DAY (125MG TABLET ONCE A DAY BY MOUTH)
     Route: 048
     Dates: start: 2019
  2. IBRANCE [Suspect]
     Active Substance: PALBOCICLIB
     Route: 048
  3. IBRANCE [Suspect]
     Active Substance: PALBOCICLIB
  4. EXTAVIA [Suspect]
     Active Substance: INTERFERON BETA-1B
  5. LETROZOLE [Concomitant]
     Active Substance: LETROZOLE
     Indication: Breast cancer metastatic
     Dosage: 2.5MG TABLET EVERY NIGHT BY MOUTH (TAKING FOR ALMOST 6 YEARS, IT WILL BE 6 YEARS IN OCT2025)
     Route: 048
  6. XGEVA [Concomitant]
     Active Substance: DENOSUMAB
  7. AMOXICILLIN [Concomitant]
     Active Substance: AMOXICILLIN
     Indication: Osteonecrosis of jaw
     Dosage: 500 MG, 2X/DAY
     Route: 048
     Dates: start: 202401
  8. AMOXICILLIN [Concomitant]
     Active Substance: AMOXICILLIN
     Dosage: 1000 IU, 1X/DAY
  9. LIPITOR [Concomitant]
     Active Substance: ATORVASTATIN CALCIUM
     Indication: Blood cholesterol increased
     Dosage: 80 MG, DAILY
     Route: 048
     Dates: start: 202411
  10. LIPITOR [Concomitant]
     Active Substance: ATORVASTATIN CALCIUM
     Dosage: 160 MG, 1X/DAY
     Route: 048
     Dates: start: 202505
  11. VALSARTAN [Concomitant]
     Active Substance: VALSARTAN
     Indication: Hypertension
     Dosage: 90 MG, DAILY
     Route: 048
     Dates: start: 202411
  12. VALSARTAN [Concomitant]
     Active Substance: VALSARTAN
     Dosage: 180 MG, 1X/DAY
     Route: 048
     Dates: start: 202505

REACTIONS (31)
  - Osteonecrosis of jaw [Unknown]
  - Neutrophil count decreased [Unknown]
  - Cataract [Unknown]
  - Immunodeficiency [Unknown]
  - Type 2 diabetes mellitus [Unknown]
  - Catheterisation cardiac [Unknown]
  - Osteomyelitis [Unknown]
  - White blood cell count decreased [Recovering/Resolving]
  - Malignant neoplasm progression [Unknown]
  - Breast cancer metastatic [Unknown]
  - Metastases to spine [Unknown]
  - Asthenia [Not Recovered/Not Resolved]
  - Somnolence [Unknown]
  - Fatigue [Unknown]
  - Infection [Unknown]
  - Electrocardiogram abnormal [Unknown]
  - Tumour marker decreased [Recovering/Resolving]
  - Dental caries [Unknown]
  - Circumoral swelling [Unknown]
  - Stomatitis [Unknown]
  - Pain in jaw [Unknown]
  - Back pain [Unknown]
  - Blood cholesterol abnormal [Unknown]
  - Blood pressure abnormal [Unknown]
  - Blood cholesterol increased [Unknown]
  - Glycosylated haemoglobin increased [Unknown]
  - Glucose tolerance impaired [Unknown]
  - Blood glucose increased [Unknown]
  - Blood cholesterol increased [Unknown]
  - Cardiac disorder [Unknown]
  - Spinal stenosis [Unknown]

NARRATIVE: CASE EVENT DATE: 20190101
